FAERS Safety Report 9024628 (Version 2)
Quarter: 2013Q2

REPORT INFORMATION
  Report Type: Spontaneous
  Country: CA (occurrence: CA)
  Receive Date: 20130121
  Receipt Date: 20130523
  Transmission Date: 20140414
  Serious: Yes (Hospitalization, Other)
  Sender: FDA-Public Use
  Company Number: CA-AMGEN-CANSP2013002954

PATIENT
  Age: 58 Year
  Sex: Female

DRUGS (9)
  1. ENBREL [Suspect]
     Indication: PSORIATIC ARTHROPATHY
     Dosage: 50 MG, QWK
     Dates: start: 20100501, end: 201303
  2. CELEBREX [Concomitant]
     Dosage: UNK
  3. METOPROLOL [Concomitant]
     Dosage: UNK
  4. BACLOFEN [Concomitant]
     Dosage: UNK
  5. RABEPRAZOLE [Concomitant]
     Dosage: UNK
  6. AMITRIPTYLINE [Concomitant]
     Dosage: UNK
  7. OXYCONTIN [Concomitant]
     Dosage: UNK
  8. PERCOCET                           /00867901/ [Concomitant]
     Dosage: UNK
  9. LYRICA [Concomitant]
     Dosage: UNK

REACTIONS (12)
  - Hypoaesthesia [Recovering/Resolving]
  - Bacteraemia [Unknown]
  - Pyrexia [Unknown]
  - Drug effect decreased [Unknown]
  - Back pain [Recovering/Resolving]
  - Pain in extremity [Recovering/Resolving]
  - Insomnia [Recovering/Resolving]
  - Muscle spasms [Recovering/Resolving]
  - Feeling hot [Recovering/Resolving]
  - Inflammatory marker increased [Unknown]
  - Pneumonia [Unknown]
  - Infection [Unknown]
